FAERS Safety Report 6534835-6 (Version None)
Quarter: 2010Q1

REPORT INFORMATION
  Report Type: 
  Country: None (occurrence: None)
  Receive Date: 20100112
  Receipt Date: 20091229
  Transmission Date: 20100710
  Serious: Yes (Hospitalization)
  Sender: FDA-Public Use
  Company Number: HK-MYLANLABS-2009S1022092

PATIENT
  Age: 17 Year
  Sex: Male

DRUGS (2)
  1. OLANZAPINE [Suspect]
     Indication: SCHIZOPHRENIA
     Dosage: 10 MG/DAY
     Dates: start: 20080919, end: 20081001
  2. RISPERIDONE [Suspect]
     Indication: SCHIZOPHRENIA
     Dosage: ADJUSTED UP TO 4 MG/DAY
     Dates: start: 20080807, end: 20080901

REACTIONS (1)
  - HEPATOTOXICITY [None]
